FAERS Safety Report 26167647 (Version 1)
Quarter: 2025Q4

REPORT INFORMATION
  Report Type: Spontaneous
  Country: US (occurrence: US)
  Receive Date: 20251217
  Receipt Date: 20251217
  Transmission Date: 20260117
  Serious: Yes (Other)
  Sender: PACIRA
  Company Number: US-ORG100016242-2025000183

PATIENT
  Sex: Female

DRUGS (2)
  1. EXPAREL [Suspect]
     Active Substance: BUPIVACAINE
     Indication: Product used for unknown indication
     Dosage: NOT PROVIDED
     Route: 065
  2. BUPIVACAINE [Suspect]
     Active Substance: BUPIVACAINE
     Indication: Product used for unknown indication
     Dosage: NOT PROVIDED
     Route: 065

REACTIONS (1)
  - Local anaesthetic systemic toxicity [Recovered/Resolved]
